FAERS Safety Report 9178560 (Version 1)
Quarter: 2012Q4

REPORT INFORMATION
  Report Type: 
  Country: US (occurrence: US)
  Receive Date: 20121029
  Receipt Date: 20121029
  Transmission Date: 20130627
  Serious: Yes (Other)
  Sender: FDA-Public Use
  Company Number: US-JNJFOC-20121013210

PATIENT

DRUGS (11)
  1. DOXORUBICIN [Suspect]
     Indication: OSTEOSARCOMA METASTATIC
     Dosage: as IV bolus X 2 days during week 1, 6, 17, 25 and 29
     Route: 042
  2. CISPLATIN [Suspect]
     Indication: OSTEOSARCOMA METASTATIC
     Dosage: week 1, 6, 17, and 25 x 2 days
     Route: 065
  3. METHOTREXATE [Suspect]
     Indication: OSTEOSARCOMA METASTATIC
     Dosage: per day; week 4, 5, 9, 10, 16, 20, 24, 28, 32 and 33
     Route: 065
  4. IFOSFAMIDE [Suspect]
     Indication: OSTEOSARCOMA METASTATIC
     Dosage: 2.8 g/m2-week 13, 21 and 34; 1.8 g/m2 during week 29; both per day x 5 days with MESNA
     Route: 065
  5. ETOPOSIDE [Suspect]
     Indication: OSTEOSARCOMA METASTATIC
     Dosage: per day for 5 days during week 13, 21, and 34
     Route: 065
  6. DEXRAZOXANE [Suspect]
     Indication: OSTEOSARCOMA METASTATIC
     Dosage: 375 mg/m2/dose given with doxorubicin hydrochloride
     Route: 065
  7. TRASTUZUMAB [Suspect]
     Indication: OSTEOSARCOMA METASTATIC
     Dosage: for a total of 34 doses
     Route: 065
  8. TRASTUZUMAB [Suspect]
     Indication: OSTEOSARCOMA METASTATIC
     Dosage: 4 mg/kg during week 1 followed by 2 mg/kg weekly for total of 34 doses
     Route: 065
  9. LEUCOVORIN [Suspect]
     Indication: OSTEOSARCOMA METASTATIC
     Dosage: every 6 hours x 10 doses starting 24 hours after methotrexate
     Route: 065
  10. MESNA [Concomitant]
     Indication: OSTEOSARCOMA METASTATIC
     Dosage: given along with ifsofamide
     Route: 065
  11. GRANULOCYTE COLONY STIMULATING FACTOR [Concomitant]
     Indication: OSTEOSARCOMA METASTATIC
     Dosage: given with all courses except methotrexate
     Route: 065

REACTIONS (19)
  - Neutropenic infection [Unknown]
  - Infection [Unknown]
  - Stomatitis [Unknown]
  - Nausea [Unknown]
  - Vomiting [Unknown]
  - Neutropenia [Unknown]
  - Febrile neutropenia [Unknown]
  - Platelet transfusion [Unknown]
  - Packed red blood cell transfusion [Unknown]
  - Hypokalaemia [Unknown]
  - Hypocalcaemia [Unknown]
  - Hypophosphataemia [Unknown]
  - Hypomagnesaemia [Unknown]
  - Aspartate aminotransferase abnormal [Unknown]
  - Alanine aminotransferase abnormal [Unknown]
  - Myeloid leukaemia [Unknown]
  - Blood pressure systolic decreased [Unknown]
  - Blood pressure diastolic decreased [Unknown]
  - Off label use [Unknown]
